FAERS Safety Report 9874335 (Version 2)
Quarter: 2014Q1

REPORT INFORMATION
  Report Type: Spontaneous
  Country: US (occurrence: US)
  Receive Date: 20140206
  Receipt Date: 20140206
  Transmission Date: 20141002
  Serious: No
  Sender: FDA-Public Use
  Company Number: US-ACORDA-ACO_33685_2013

PATIENT
  Sex: Female

DRUGS (2)
  1. AMPYRA [Suspect]
     Indication: MULTIPLE SCLEROSIS
     Dosage: 10 MG, Q 12 HRS
     Dates: start: 20121205, end: 20130102
  2. VALACYCLOVIR HYDROCHLORIDE [Suspect]
     Indication: ORAL HERPES

REACTIONS (2)
  - Oral herpes [Recovered/Resolved]
  - Drug interaction [Recovered/Resolved]
